FAERS Safety Report 7305829-8 (Version None)
Quarter: 2011Q1

REPORT INFORMATION
  Report Type: 
  Country: None (occurrence: None)
  Receive Date: 20110222
  Receipt Date: 20110208
  Transmission Date: 20110831
  Serious: Yes (Hospitalization)
  Sender: FDA-Public Use
  Company Number: JP-ROCHE-759970

PATIENT
  Age: 77 Year
  Sex: Female

DRUGS (3)
  1. ELPLAT [Suspect]
     Indication: RECTAL CANCER RECURRENT
     Dosage: DOSAGE IS UNCERTAIN.
     Route: 041
  2. XELODA [Suspect]
     Indication: RECTAL CANCER RECURRENT
     Route: 048
     Dates: start: 20101104, end: 20110121
  3. AVASTIN [Suspect]
     Indication: RECTAL CANCER RECURRENT
     Route: 048
     Dates: start: 20101104, end: 20110121

REACTIONS (3)
  - ALTERED STATE OF CONSCIOUSNESS [None]
  - BEDRIDDEN [None]
  - APHASIA [None]
